FAERS Safety Report 8402628-0 (Version None)
Quarter: 2012Q2

REPORT INFORMATION
  Report Type: 
  Country: None (occurrence: None)
  Receive Date: 20120601
  Receipt Date: 20120529
  Transmission Date: 20120825
  Serious: Yes (Death)
  Sender: FDA-Public Use
  Company Number: PHHY2011DK72005

PATIENT

DRUGS (1)
  1. FLUOXETINE [Suspect]

REACTIONS (2)
  - DEATH [None]
  - EXPOSURE DURING BREAST FEEDING [None]
